FAERS Safety Report 10161023 (Version 1)
Quarter: 2014Q2

REPORT INFORMATION
  Report Type: Spontaneous
  Country: US (occurrence: US)
  Receive Date: 20140508
  Receipt Date: 20140508
  Transmission Date: 20141212
  Serious: No
  Sender: FDA-Public Use
  Company Number: US-PFIZER INC-2014124132

PATIENT
  Age: 61 Year
  Sex: Male
  Weight: 93.88 kg

DRUGS (3)
  1. GLIPIZIDE XL [Suspect]
     Indication: GLUCOSE TOLERANCE IMPAIRED
     Dosage: 10 MG, DAILY
     Dates: start: 201311
  2. LISINOPRIL [Concomitant]
     Dosage: 25 MG, DAILY
  3. ASPIRIN [Concomitant]
     Dosage: 81 MG, DAILY

REACTIONS (2)
  - Blood glucose abnormal [Unknown]
  - Medication residue present [Unknown]
